FAERS Safety Report 4664246-X (Version None)
Quarter: 2005Q2

REPORT INFORMATION
  Report Type: 
  Country: None (occurrence: None)
  Receive Date: 20050516
  Receipt Date: 20050506
  Transmission Date: 20051028
  Serious: Yes (Hospitalization, Other)
  Sender: FDA-Public Use
  Company Number: 2005-05-0516

PATIENT
  Age: 73 Year
  Sex: Female

DRUGS (2)
  1. CLARITIN [Suspect]
     Dosage: 10 MG QD ORAL
     Route: 048
  2. AMIODARONE TABLETS [Suspect]
     Indication: VENTRICULAR TACHYCARDIA
     Dosage: 200 MG QD ORAL
     Route: 048

REACTIONS (2)
  - SYNCOPE [None]
  - TORSADE DE POINTES [None]
